FAERS Safety Report 5020718-X (Version None)
Quarter: 2006Q2

REPORT INFORMATION
  Report Type: 
  Country: None (occurrence: None)
  Receive Date: 20060601
  Receipt Date: 20060510
  Transmission Date: 20061013
  Serious: Yes (Hospitalization)
  Sender: FDA-Public Use
  Company Number: GXKR2006DE02732

PATIENT
  Age: 15 Year
  Sex: Female

DRUGS (4)
  1. AMOXICILLIN [Suspect]
     Indication: PYREXIA
  2. PENICILLIN V [Suspect]
     Indication: PYREXIA
  3. CLINDAMYCIN [Concomitant]
  4. CIPROFLOXACIN HCL [Concomitant]

REACTIONS (10)
  - ARTHRALGIA [None]
  - GLOMERULONEPHRITIS [None]
  - HAEMOLYTIC URAEMIC SYNDROME [None]
  - INFECTION [None]
  - NEPHRITIS INTERSTITIAL [None]
  - PHARYNGITIS [None]
  - RASH MACULO-PAPULAR [None]
  - RENAL FAILURE ACUTE [None]
  - THROMBOCYTOPENIA [None]
  - VASCULITIS [None]
